FAERS Safety Report 5177515-4 (Version None)
Quarter: 2006Q4

REPORT INFORMATION
  Report Type: 
  Country: None (occurrence: None)
  Receive Date: 20061218
  Receipt Date: 20060721
  Transmission Date: 20070319
  Serious: No
  Sender: FDA-Public Use
  Company Number: US-AMGEN-KDL187335

PATIENT
  Sex: Female
  Weight: 81.7 kg

DRUGS (14)
  1. ENBREL [Suspect]
     Indication: RHEUMATOID ARTHRITIS
     Route: 058
     Dates: start: 20050319
  2. METHOTREXATE [Concomitant]
     Dates: start: 20040117
  3. FOLIC ACID [Concomitant]
     Dates: start: 20040117
  4. LEUCOVORIN CALCIUM [Concomitant]
     Dates: start: 20050121
  5. ARAVA [Concomitant]
     Dates: start: 20051029
  6. ACTONEL [Concomitant]
     Dates: start: 20040228
  7. TYLENOL [Concomitant]
     Dates: start: 19980101
  8. LORTAB [Concomitant]
     Dates: start: 20051029
  9. CLORIDINE [Concomitant]
     Dates: start: 20050101
  10. SULAR [Concomitant]
     Dates: start: 20060201
  11. PREMARIN [Concomitant]
     Dates: start: 19760101
  12. MICARDIS [Concomitant]
     Dates: start: 20060201
  13. HYDROCHLOROTHIAZIDE [Concomitant]
     Dates: start: 20060201
  14. CELEBREX [Concomitant]

REACTIONS (2)
  - GLAUCOMA [None]
  - NERVE INJURY [None]
